FAERS Safety Report 5824321-0 (Version None)
Quarter: 2008Q3

REPORT INFORMATION
  Report Type: 
  Country: None (occurrence: None)
  Receive Date: 20080728
  Receipt Date: 20080715
  Transmission Date: 20090109
  Serious: Yes (Hospitalization)
  Sender: FDA-Public Use
  Company Number: US-KINGPHARMUSA00001-K200800776

PATIENT

DRUGS (4)
  1. ALTACE [Suspect]
     Indication: HYPERTENSION
     Dosage: UNK, PRN
     Route: 048
  2. CORTISON [Concomitant]
     Indication: GLOMERULONEPHRITIS
     Dosage: 4 MG, UNK
     Route: 048
  3. CORTISON [Concomitant]
     Indication: NEPHROTIC SYNDROME
  4. URBASON                            /00049601/ [Concomitant]
     Indication: OEDEMA PERIPHERAL
     Dosage: 4 MG, UNK

REACTIONS (13)
  - CATARACT NUCLEAR [None]
  - CHOROIDAL DETACHMENT [None]
  - CHOROIDAL EFFUSION [None]
  - EYE PAIN [None]
  - FLAT ANTERIOR CHAMBER OF EYE [None]
  - HYPERMETROPIA [None]
  - INTRAOCULAR PRESSURE INCREASED [None]
  - IRIS ADHESIONS [None]
  - IRIS DISORDER [None]
  - LENS DISLOCATION [None]
  - MACULAR DEGENERATION [None]
  - RETINAL DETACHMENT [None]
  - VISUAL ACUITY REDUCED [None]
